FAERS Safety Report 8687492 (Version 2)
Quarter: 2013Q4

REPORT INFORMATION
  Report Type: Spontaneous
  Country: US (occurrence: US)
  Receive Date: 20120727
  Receipt Date: 20131101
  Transmission Date: 20140711
  Serious: No
  Sender: FDA-Public Use
  Company Number: US-009507513-1204USA02421

PATIENT
  Sex: Female

DRUGS (2)
  1. JANUVIA [Suspect]
     Indication: DIABETES MELLITUS
     Dosage: 50 MG, QD
     Route: 048
  2. METFORMIN [Concomitant]
     Dosage: UNK UNK, QD

REACTIONS (3)
  - Renal disorder [Unknown]
  - Diarrhoea [Unknown]
  - Back pain [Unknown]
